FAERS Safety Report 4884263-4 (Version None)
Quarter: 2005Q4

REPORT INFORMATION
  Report Type: 
  Country: None (occurrence: None)
  Receive Date: 20051201
  Receipt Date: 20050912
  Transmission Date: 20060501
  Serious: No
  Sender: FDA-Public Use
  Company Number: 2005PV002007

PATIENT
  Age: 58 Year
  Sex: Male
  Weight: 90.7194 kg

DRUGS (11)
  1. BYETTA [Suspect]
     Indication: DIABETES MELLITUS NON-INSULIN-DEPENDENT
     Dosage: 5 MCG; BID; SC
     Route: 058
     Dates: start: 20050909
  2. GLIPIZIDE [Concomitant]
  3. METFORMIN [Concomitant]
  4. ACTOS [Concomitant]
  5. ALLOPURINOL [Concomitant]
  6. ALTACE [Concomitant]
  7. BISOPROLOL [Concomitant]
  8. CIALIS [Concomitant]
  9. ECOTRIN [Concomitant]
  10. PRILOSEC [Concomitant]
  11. PEPTO-BISMOL [Concomitant]

REACTIONS (4)
  - ABDOMINAL PAIN UPPER [None]
  - DYSPEPSIA [None]
  - HICCUPS [None]
  - INSOMNIA [None]
